FAERS Safety Report 22530963 (Version 2)
Quarter: 2023Q2

REPORT INFORMATION
  Report Type: Report from Study
  Country: TW (occurrence: None)
  Receive Date: 20230607
  Receipt Date: 20230616
  Transmission Date: 20230721
  Serious: Yes (Death, Hospitalization, Other)
  Sender: FDA-Public Use
  Company Number: 2023A129864

PATIENT
  Sex: Male

DRUGS (1)
  1. IMFINZI [Suspect]
     Active Substance: DURVALUMAB
     Dosage: 600.0MG UNKNOWN
     Route: 041
     Dates: start: 20230527

REACTIONS (3)
  - Renal impairment [Fatal]
  - Pulmonary oedema [Fatal]
  - Wheezing [Fatal]
